FAERS Safety Report 5769162-8 (Version None)
Quarter: 2008Q2

REPORT INFORMATION
  Report Type: 
  Country: None (occurrence: None)
  Receive Date: 20080612
  Receipt Date: 20080320
  Transmission Date: 20081010
  Serious: No
  Sender: FDA-Public Use
  Company Number: US-ABBOTT-08P-163-0443903-00

PATIENT
  Sex: Female
  Weight: 52.21 kg

DRUGS (7)
  1. HUMIRA [Suspect]
     Indication: CROHN'S DISEASE
     Route: 058
     Dates: start: 20080201
  2. BUDESONIDE [Concomitant]
     Indication: CROHN'S DISEASE
     Route: 048
  3. AZATHIOPRINE [Concomitant]
     Indication: CROHN'S DISEASE
     Route: 048
  4. ESCITALOPRAM OXALATE [Concomitant]
     Indication: ANXIETY
     Route: 048
  5. DOXYCYCLINE [Concomitant]
     Indication: STAPHYLOCOCCAL INFECTION
     Route: 048
  6. LUNESTA [Concomitant]
     Indication: INSOMNIA
     Route: 048
  7. LIALDA [Concomitant]
     Indication: CROHN'S DISEASE
     Route: 048

REACTIONS (1)
  - MENSTRUAL DISORDER [None]
